FAERS Safety Report 24736285 (Version 1)
Quarter: 2024Q4

REPORT INFORMATION
  Report Type: Report from Study
  Country: US (occurrence: US)
  Receive Date: 20241216
  Receipt Date: 20241216
  Transmission Date: 20250115
  Serious: No
  Sender: BIOVITRUM
  Company Number: US-BIOVITRUM-2024-US-009359

PATIENT
  Age: 49 Year
  Sex: Female

DRUGS (1)
  1. KINERET [Suspect]
     Active Substance: ANAKINRA
     Indication: Product used for unknown indication
     Dosage: QD
     Route: 058

REACTIONS (7)
  - Pain [Unknown]
  - Product use issue [Unknown]
  - Muscle spasms [Unknown]
  - Mass [Unknown]
  - Infection [Unknown]
  - Injection site bruising [Unknown]
  - Drug ineffective [Unknown]
